FAERS Safety Report 9354565 (Version 1)
Quarter: 2013Q2

REPORT INFORMATION
  Report Type: Spontaneous
  Country: US (occurrence: US)
  Receive Date: 20130618
  Receipt Date: 20130618
  Transmission Date: 20140414
  Serious: No
  Sender: FDA-Public Use
  Company Number: US-ASTRAZENECA-2013SE41811

PATIENT
  Age: 11 Year
  Sex: Female
  Weight: 32.7 kg

DRUGS (3)
  1. PULMICORT FLEXHALER [Suspect]
     Indication: ASTHMA
     Dosage: 180 MCG 1 PUFF,  PRN.
     Route: 055
  2. MAXAIR [Concomitant]
     Indication: ASTHMA
     Dosage: 2 PUFFS PRN
     Route: 055
  3. FLONASE [Concomitant]
     Indication: MULTIPLE ALLERGIES
     Dosage: 1 SPRAY EACH NOSTRIL DAILY
     Route: 045

REACTIONS (6)
  - Coeliac disease [Unknown]
  - Nasopharyngitis [Unknown]
  - Scoliosis [Unknown]
  - Hypersensitivity [Unknown]
  - Drug prescribing error [Unknown]
  - Drug administration error [Unknown]
